FAERS Safety Report 7978995-9 (Version None)
Quarter: 2011Q4

REPORT INFORMATION
  Report Type: 
  Country: None (occurrence: None)
  Receive Date: 20111201
  Receipt Date: 20111110
  Transmission Date: 20120403
  Serious: Yes (Other)
  Sender: FDA-Public Use
  Company Number: US-1189012

PATIENT

DRUGS (1)
  1. BSS [Suspect]
     Indication: EYE OPERATION
     Dosage: (INTRAOCULAR)
     Route: 031

REACTIONS (2)
  - ENDOPHTHALMITIS [None]
  - STAPHYLOCOCCUS TEST POSITIVE [None]
